FAERS Safety Report 8139069-X (Version None)
Quarter: 2012Q1

REPORT INFORMATION
  Report Type: 
  Country: None (occurrence: None)
  Receive Date: 20120215
  Receipt Date: 20120213
  Transmission Date: 20120608
  Serious: Yes (Other)
  Sender: FDA-Public Use
  Company Number: DK-PFIZER INC-2012038903

PATIENT
  Age: 62 Year
  Sex: Female
  Weight: 85 kg

DRUGS (1)
  1. VARENICLINE TARTRATE [Suspect]
     Indication: SMOKING CESSATION THERAPY
     Dosage: UNK
     Route: 048
     Dates: start: 20110812, end: 20111025

REACTIONS (18)
  - VISUAL IMPAIRMENT [None]
  - GINGIVAL BLEEDING [None]
  - ABDOMINAL DISCOMFORT [None]
  - PAIN IN EXTREMITY [None]
  - RESTLESSNESS [None]
  - DRY MOUTH [None]
  - ABNORMAL DREAMS [None]
  - SLEEP DISORDER [None]
  - ARTHRALGIA [None]
  - MUSCLE TIGHTNESS [None]
  - TINNITUS [None]
  - GINGIVAL PAIN [None]
  - NAUSEA [None]
  - HAEMATOCHEZIA [None]
  - DIZZINESS [None]
  - WEIGHT INCREASED [None]
  - BACK PAIN [None]
  - HEADACHE [None]
